FAERS Safety Report 4331608-X (Version None)
Quarter: 2004Q1

REPORT INFORMATION
  Report Type: 
  Country: None (occurrence: None)
  Receive Date: 20040329
  Receipt Date: 20040316
  Transmission Date: 20041129
  Serious: No
  Sender: FDA-Public Use
  Company Number: 2003UW15494

PATIENT
  Age: 38 Year
  Sex: Female

DRUGS (5)
  1. XYLOCAINE [Suspect]
     Indication: LOCAL ANAESTHESIA
     Dosage: 200 MG ONCE IF
     Dates: start: 20031022, end: 20031022
  2. PROPOFOL [Concomitant]
  3. KEFZOL [Concomitant]
  4. TAMOXIFEN CITRATE [Concomitant]
  5. VALTREX [Concomitant]

REACTIONS (2)
  - BLOOD PRESSURE INCREASED [None]
  - TACHYCARDIA [None]
